FAERS Safety Report 7889559-X (Version None)
Quarter: 2011Q4

REPORT INFORMATION
  Report Type: 
  Country: None (occurrence: None)
  Receive Date: 20111103
  Receipt Date: 20110516
  Transmission Date: 20120403
  Serious: No
  Sender: FDA-Public Use
  Company Number: US-BRISTOL-MYERS SQUIBB COMPANY-15533177

PATIENT
  Age: 41 Year
  Sex: Female

DRUGS (1)
  1. KENALOG-40 [Suspect]
     Dosage: TWO IN SEP10+ ONE IN OCT2010 STRENGTH:2ML NO OF INJ:3
     Dates: start: 20100901

REACTIONS (4)
  - INJECTION SITE ATROPHY [None]
  - ABDOMINAL PAIN UPPER [None]
  - PAIN [None]
  - PYREXIA [None]
